FAERS Safety Report 10731938 (Version 1)
Quarter: 2015Q1

REPORT INFORMATION
  Report Type: Report from Study
  Country: CL (occurrence: CL)
  Receive Date: 20150123
  Receipt Date: 20150123
  Transmission Date: 20150721
  Serious: Yes (Hospitalization, Other)
  Sender: FDA-Public Use
  Company Number: CL-ROCHE-1471591

PATIENT
  Age: 58 Year
  Sex: Female
  Weight: 84 kg

DRUGS (2)
  1. XELODA [Suspect]
     Active Substance: CAPECITABINE
     Indication: COLORECTAL CANCER
     Dosage: 14 DAYS PER CYCLE
     Route: 048
     Dates: start: 20140805
  2. LOSARTAN [Concomitant]
     Active Substance: LOSARTAN
     Indication: HYPERTENSION
     Route: 048
     Dates: start: 2008

REACTIONS (15)
  - Fatigue [Unknown]
  - Haemoglobin decreased [Unknown]
  - Drug dose omission [Unknown]
  - Somnolence [Recovered/Resolved]
  - Weight decreased [Not Recovered/Not Resolved]
  - Somnolence [Unknown]
  - White blood cell count increased [Unknown]
  - Haematocrit decreased [Unknown]
  - Malaise [Not Recovered/Not Resolved]
  - Constipation [Unknown]
  - Feeding disorder [Unknown]
  - Pyrexia [Unknown]
  - Tachycardia [Recovered/Resolved]
  - Depressed mood [Unknown]
  - C-reactive protein increased [Unknown]

NARRATIVE: CASE EVENT DATE: 20150105
